FAERS Safety Report 5600432-X (Version None)
Quarter: 2008Q1

REPORT INFORMATION
  Report Type: 
  Country: None (occurrence: None)
  Receive Date: 20080123
  Receipt Date: 20080116
  Transmission Date: 20080703
  Serious: Yes (Other)
  Sender: FDA-Public Use
  Company Number: CA-ROCHE-498059

PATIENT
  Age: 41 Year
  Sex: Female

DRUGS (2)
  1. PEG-INTERFERON ALFA 2A (RO 25-8310) [Suspect]
     Route: 058
     Dates: end: 20061114
  2. RIBAVIRIN [Suspect]
     Route: 048
     Dates: end: 20061120

REACTIONS (1)
  - ABORTION SPONTANEOUS [None]
